FAERS Safety Report 16027810 (Version 1)
Quarter: 2019Q1

REPORT INFORMATION
  Report Type: Report from Study
  Country: AU (occurrence: AU)
  Receive Date: 20190304
  Receipt Date: 20190304
  Transmission Date: 20190418
  Serious: Yes (Other)
  Sender: FDA-Public Use
  Company Number: AU-TOLMAR, INC.-2019AU002078

PATIENT

DRUGS (3)
  1. OSTELIN VITAMIN D [Concomitant]
     Active Substance: CHOLECALCIFEROL
  2. ENDONE [Concomitant]
     Active Substance: OXYCODONE HYDROCHLORIDE
  3. ELIGARD [Suspect]
     Active Substance: LEUPROLIDE ACETATE
     Indication: PROSTATE CANCER
     Dosage: 30 MG, FOUR MONTHLY
     Route: 058

REACTIONS (4)
  - Fatigue [Unknown]
  - Suicidal ideation [Unknown]
  - Depression [Unknown]
  - Asthenia [Unknown]
